FAERS Safety Report 9803037 (Version 2)
Quarter: 2014Q3

REPORT INFORMATION
  Report Type: Spontaneous
  Country: US (occurrence: US)
  Receive Date: 20140108
  Receipt Date: 20140806
  Transmission Date: 20150326
  Serious: Yes (Hospitalization, Other)
  Sender: FDA-Public Use
  Company Number: US-009507513-1401USA002032

PATIENT
  Sex: Female

DRUGS (1)
  1. NUVARING [Suspect]
     Active Substance: ETHINYL ESTRADIOL\ETONOGESTREL
     Indication: MENORRHAGIA
     Dosage: UNK
     Route: 067
     Dates: end: 20101031

REACTIONS (10)
  - Menometrorrhagia [Unknown]
  - Intracranial venous sinus thrombosis [Unknown]
  - Endometrial ablation [Unknown]
  - Hypercalcaemia [Unknown]
  - Sinusitis [Unknown]
  - Thrombosis [Unknown]
  - Female sterilisation [Unknown]
  - Cerebral salt-wasting syndrome [Unknown]
  - Menorrhagia [Unknown]
  - Off label use [Unknown]

NARRATIVE: CASE EVENT DATE: 201010
